FAERS Safety Report 5048637-3 (Version None)
Quarter: 2006Q3

REPORT INFORMATION
  Report Type: 
  Country: None (occurrence: None)
  Receive Date: 20060705
  Receipt Date: 20060614
  Transmission Date: 20061208
  Serious: Yes (Other)
  Sender: FDA-Public Use
  Company Number: GB200606003699

PATIENT
  Sex: Female
  Weight: 82 kg

DRUGS (1)
  1. OLANZAPINE [Suspect]
     Indication: PSYCHOTIC DISORDER
     Dosage: 5 MG, ORAL
     Route: 048
     Dates: start: 20060512, end: 20060515

REACTIONS (4)
  - ATRIOVENTRICULAR EXTRASYSTOLES [None]
  - BALANCE DISORDER [None]
  - DIZZINESS [None]
  - DYSARTHRIA [None]
